FAERS Safety Report 22933666 (Version 3)
Quarter: 2023Q4

REPORT INFORMATION
  Report Type: Spontaneous
  Country: CN (occurrence: None)
  Receive Date: 20230912
  Receipt Date: 20231218
  Transmission Date: 20240110
  Serious: Yes (Hospitalization)
  Sender: FDA-Public Use
  Company Number: CN-ROCHE-3416990

PATIENT
  Age: 39 Year
  Sex: Female
  Weight: 30 kg

DRUGS (2)
  1. EVRYSDI [Suspect]
     Active Substance: RISDIPLAM
     Indication: Spinal muscular atrophy
     Route: 048
     Dates: start: 20230823
  2. NUSINERSEN [Concomitant]
     Active Substance: NUSINERSEN
     Indication: Spinal muscular atrophy
     Dosage: ADMINISTERED FOR 7 TIMES, LAST DOSE ADMINISTERED ON 19/APR/2023
     Dates: end: 20230419

REACTIONS (7)
  - Haematuria [Unknown]
  - Protein urine [Unknown]
  - Urinary occult blood [Unknown]
  - Liver injury [Unknown]
  - Red blood cell count decreased [Unknown]
  - Infection [Unknown]
  - Renal injury [Unknown]

NARRATIVE: CASE EVENT DATE: 20230904
